FAERS Safety Report 5471909-5 (Version None)
Quarter: 2007Q3

REPORT INFORMATION
  Report Type: 
  Country: None (occurrence: None)
  Receive Date: 20070928
  Receipt Date: 20070917
  Transmission Date: 20080115
  Serious: Yes (Hospitalization, Other)
  Sender: FDA-Public Use
  Company Number: US-PFIZER INC-2007055122

PATIENT
  Sex: Female
  Weight: 61.818 kg

DRUGS (6)
  1. CELEBREX [Suspect]
     Indication: OSTEOARTHRITIS
     Dates: start: 20010503, end: 20070101
  2. CELEBREX [Suspect]
     Indication: POLYARTHRITIS
  3. ACTONEL [Concomitant]
  4. BIOTIN [Concomitant]
  5. CALTRATE + D [Concomitant]
  6. MOBIC [Concomitant]

REACTIONS (11)
  - ACCIDENT [None]
  - ARTHRITIS [None]
  - CATARACT [None]
  - CHEST PAIN [None]
  - DYSPEPSIA [None]
  - MACULAR DEGENERATION [None]
  - OSTEOPENIA [None]
  - SUBDURAL HAEMATOMA [None]
  - THYROID NEOPLASM [None]
  - URTICARIA [None]
  - VITREOUS DEGENERATION [None]
